FAERS Safety Report 5289011-4 (Version None)
Quarter: 2007Q2

REPORT INFORMATION
  Report Type: 
  Country: None (occurrence: None)
  Receive Date: 20070405
  Receipt Date: 20070326
  Transmission Date: 20071010
  Serious: Yes (Other)
  Sender: FDA-Public Use
  Company Number: ES-PFIZER INC-2007023752

PATIENT
  Age: 54 Year
  Sex: Male

DRUGS (1)
  1. CHAMPIX [Suspect]
     Indication: SMOKING CESSATION THERAPY
     Route: 048
     Dates: start: 20070320, end: 20070320

REACTIONS (3)
  - HYPERTENSIVE CRISIS [None]
  - PALPITATIONS [None]
  - SKIN REACTION [None]
